FAERS Safety Report 12926204 (Version 1)
Quarter: 2016Q4

REPORT INFORMATION
  Report Type: Spontaneous
  Country: CA (occurrence: CA)
  Receive Date: 20161109
  Receipt Date: 20161109
  Transmission Date: 20170207
  Serious: Yes (Disabling)
  Sender: FDA-Public Use
  Company Number: PHHY2016CA151172

PATIENT
  Age: 35 Year
  Sex: Female
  Weight: 80.73 kg

DRUGS (2)
  1. POLYSPORIN OPHTHALMIC [Concomitant]
     Active Substance: BACITRACIN ZINC\POLYMYXIN B SULFATE
     Indication: PRODUCT USED FOR UNKNOWN INDICATION
     Route: 065
  2. MOXIFLOXACIN SANDOZ [Suspect]
     Active Substance: MOXIFLOXACIN
     Indication: CONJUNCTIVITIS
     Dosage: 3 DRP, QD
     Route: 031

REACTIONS (1)
  - Vision blurred [Not Recovered/Not Resolved]
